FAERS Safety Report 12340537 (Version 1)
Quarter: 2016Q2

REPORT INFORMATION
  Report Type: Spontaneous
  Country: US (occurrence: None)
  Receive Date: 20160505
  Receipt Date: 20160505
  Transmission Date: 20160815
  Serious: No
  Sender: FDA-Public Use
  Company Number: None

PATIENT
  Age: 36 Year
  Sex: Female
  Weight: 61.69 kg

DRUGS (1)
  1. ROPINIROLE HCL 2MG, 2 MG EJIANG HUAHAI PHARMACEUTICAL CO. , [Suspect]
     Active Substance: ROPINIROLE HYDROCHLORIDE
     Indication: RESTLESS LEGS SYNDROME
     Dosage: 60 TABLET(S) AT BEDTIME TAKEN BY MOUTH
     Route: 048
     Dates: start: 20160217

REACTIONS (4)
  - Product substitution issue [None]
  - Nausea [None]
  - Headache [None]
  - Hyperhidrosis [None]

NARRATIVE: CASE EVENT DATE: 20160316
